FAERS Safety Report 5127710-5 (Version None)
Quarter: 2006Q4

REPORT INFORMATION
  Report Type: 
  Country: None (occurrence: None)
  Receive Date: 20061016
  Receipt Date: 20060821
  Transmission Date: 20070319
  Serious: Yes (Other)
  Sender: FDA-Public Use
  Company Number: NL-GLAXOSMITHKLINE-B0435397A

PATIENT
  Age: 77 Year
  Sex: Female
  Weight: 69 kg

DRUGS (11)
  1. ROSIGLITAZONE MALEATE [Suspect]
     Indication: DIABETES MELLITUS NON-INSULIN-DEPENDENT
     Dosage: 4MG TWICE PER DAY
     Dates: start: 20050601, end: 20060629
  2. LETROZOLE [Concomitant]
     Dosage: 2.5MG PER DAY
     Route: 065
  3. FUROSEMIDE [Concomitant]
     Dosage: 40MG TWICE PER DAY
     Route: 065
     Dates: start: 20060612
  4. METFORMIN HCL [Concomitant]
     Dosage: 850MG TWICE PER DAY
     Route: 065
  5. PASSIFLORA [Concomitant]
     Route: 065
  6. UNKNOWN [Concomitant]
     Dosage: 2DROP THREE TIMES PER DAY
     Route: 065
  7. UNKNOWN [Concomitant]
     Route: 065
  8. VENOPLANT [Concomitant]
     Route: 065
  9. DOVONEX [Concomitant]
  10. UNKNOWN DRUG [Concomitant]
     Route: 065
  11. OMEPRAZOLE [Concomitant]
     Dosage: 20MG PER DAY
     Route: 065

REACTIONS (12)
  - ANAEMIA [None]
  - AORTIC VALVE STENOSIS [None]
  - CARDIAC MURMUR [None]
  - DRUG INEFFECTIVE [None]
  - HYPERCALCIURIA [None]
  - LEUKOPENIA [None]
  - LIVER PALPABLE SUBCOSTAL [None]
  - MITRAL VALVE INCOMPETENCE [None]
  - NOCTURIA [None]
  - OEDEMA [None]
  - PANCYTOPENIA [None]
  - THROMBOCYTOPENIA [None]
